FAERS Safety Report 21087665 (Version 2)
Quarter: 2022Q3

REPORT INFORMATION
  Report Type: Spontaneous
  Country: RU (occurrence: None)
  Receive Date: 20220715
  Receipt Date: 20220801
  Transmission Date: 20221027
  Serious: Yes (Other)
  Sender: FDA-Public Use
  Company Number: RU-ROCHE-3134377

PATIENT
  Age: 53 Year
  Sex: Male
  Weight: 64 kg

DRUGS (2)
  1. TECENTRIQ [Suspect]
     Active Substance: ATEZOLIZUMAB
     Indication: Hepatocellular carcinoma
     Route: 041
     Dates: start: 201910, end: 202108
  2. BEVACIZUMAB [Suspect]
     Active Substance: BEVACIZUMAB
     Indication: Hepatocellular carcinoma
     Route: 042
     Dates: start: 201910, end: 202108

REACTIONS (2)
  - Oesophageal varices haemorrhage [Unknown]
  - Proctitis [Unknown]

NARRATIVE: CASE EVENT DATE: 20191201
